FAERS Safety Report 11043742 (Version 1)
Quarter: 2015Q2

REPORT INFORMATION
  Report Type: Spontaneous
  Country: IT (occurrence: IT)
  Receive Date: 20150417
  Receipt Date: 20150417
  Transmission Date: 20150821
  Serious: Yes (Life-Threatening)
  Sender: FDA-Public Use
  Company Number: IT-TEVA-554990ACC

PATIENT
  Age: 66 Year
  Sex: Male

DRUGS (7)
  1. ORAMORPH - 10 MG/5 ML SOLUZIONE ORALE [Concomitant]
     Indication: PAIN
     Dosage: 1 DF
     Route: 048
     Dates: start: 20141215
  2. DEURSIL - 450 MG CAPSULE RIGIDE A RILASCIO PROLUNGATO [Concomitant]
     Indication: STENT PLACEMENT
     Dosage: 450 MG (PROLONGED-RELEASE CAPSULE, HARD)
     Route: 048
     Dates: start: 20141215
  3. BRUFEN - BGP PRODUCTS S.R.L. [Suspect]
     Active Substance: IBUPROFEN
     Indication: PAIN
     Dosage: 800 MILLIGRAM DAILY;
     Route: 048
     Dates: start: 20141215, end: 20150401
  4. OXYCONTIN - 20 MG COMPRESSE A RILASCIO PROLUNGATO [Concomitant]
     Indication: PRODUCT USED FOR UNKNOWN INDICATION
     Dosage: 2 DF
     Dates: start: 20141215
  5. RANITIDINE [Suspect]
     Active Substance: RANITIDINE\RANITIDINE HYDROCHLORIDE
     Indication: PROPHYLAXIS
     Dosage: 300 MILLIGRAM DAILY;
     Route: 048
     Dates: start: 20141215, end: 20150401
  6. SOLDESAM - LABORATORIO FARMACOLOGICO MILANESE S.R.L. [Suspect]
     Active Substance: DEXAMETHASONE SODIUM PHOSPHATE
     Indication: PRODUCT USED FOR UNKNOWN INDICATION
     Dosage: 60 GTT DAILY;
     Route: 048
     Dates: start: 20150309, end: 20150316
  7. CREON - 10.000 U.PH.EUR. CAPSULE RIGIDE A RILASCIO MODIFICATO [Concomitant]
     Indication: PRODUCT USED FOR UNKNOWN INDICATION
     Dosage: 80 LU IN THOUSAND (MODIFIED-RELEASE CAPSULE, HARD)
     Route: 048
     Dates: start: 20141215

REACTIONS (6)
  - Haemoglobin decreased [None]
  - Medication error [Recovered/Resolved]
  - Drug prescribing error [None]
  - Haematocrit decreased [None]
  - Shock haemorrhagic [Recovered/Resolved]
  - Duodenal ulcer haemorrhage [Recovered/Resolved]

NARRATIVE: CASE EVENT DATE: 20150402
